FAERS Safety Report 8234103-0 (Version None)
Quarter: 2012Q1

REPORT INFORMATION
  Report Type: 
  Country: None (occurrence: None)
  Receive Date: 20120326
  Receipt Date: 20120326
  Transmission Date: 20120608
  Serious: Yes (Other)
  Sender: FDA-Public Use
  Company Number: None

PATIENT
  Age: 18 Year
  Sex: Female
  Weight: 63.502 kg

DRUGS (1)
  1. ESTRACE [Suspect]
     Indication: VULVOVAGINAL PAIN
     Dosage: A PEA SIZE DROP TOPICALLY
     Route: 061
     Dates: start: 20090615, end: 20090623

REACTIONS (4)
  - GENITAL BURNING SENSATION [None]
  - QUALITY OF LIFE DECREASED [None]
  - EDUCATIONAL PROBLEM [None]
  - IMPAIRED WORK ABILITY [None]
